FAERS Safety Report 13006778 (Version 3)
Quarter: 2017Q1

REPORT INFORMATION
  Report Type: Spontaneous
  Country: JP (occurrence: JP)
  Receive Date: 20161207
  Receipt Date: 20170215
  Transmission Date: 20170428
  Serious: Yes (Other)
  Sender: FDA-Public Use
  Company Number: JP-ABBVIE-16P-087-1803094-00

PATIENT
  Age: 43 Year
  Sex: Female

DRUGS (1)
  1. LEUPLIN [Suspect]
     Active Substance: LEUPROLIDE ACETATE
     Indication: UTERINE LEIOMYOMA
     Dosage: 1.88 MG, Q4WEEKS
     Route: 058
     Dates: start: 201607, end: 201611

REACTIONS (8)
  - Asthenia [Unknown]
  - Thyroiditis [Recovering/Resolving]
  - Goitre [Unknown]
  - Hot flush [Unknown]
  - Hyperhidrosis [Unknown]
  - Malaise [Unknown]
  - Insomnia [Unknown]
  - Hyperthyroidism [Unknown]

NARRATIVE: CASE EVENT DATE: 201610
